FAERS Safety Report 18651898 (Version 1)
Quarter: 2020Q4

REPORT INFORMATION
  Report Type: Spontaneous
  Country: US (occurrence: US)
  Receive Date: 20201223
  Receipt Date: 20201223
  Transmission Date: 20210114
  Serious: Yes (Other)
  Sender: FDA-Public Use
  Company Number: US-SA-2020SA364409

PATIENT

DRUGS (1)
  1. ZANTAC [Suspect]
     Active Substance: RANITIDINE HYDROCHLORIDE
     Dosage: 25 MG, QD
     Dates: start: 200001, end: 201401

REACTIONS (2)
  - Lung carcinoma cell type unspecified stage II [Unknown]
  - Breast cancer stage II [Unknown]

NARRATIVE: CASE EVENT DATE: 20141001
